FAERS Safety Report 12689721 (Version 9)
Quarter: 2019Q2

REPORT INFORMATION
  Report Type: Spontaneous
  Country: CA (occurrence: CA)
  Receive Date: 20160826
  Receipt Date: 20190613
  Transmission Date: 20190711
  Serious: Yes (Other)
  Sender: FDA-Public Use
  Company Number: CA-PFIZER INC-2016400948

PATIENT
  Sex: Female

DRUGS (5)
  1. METHOTREXATE SODIUM. [Suspect]
     Active Substance: METHOTREXATE SODIUM
     Dosage: 20 MG, UNK
     Route: 058
  2. PLAQUENIL [Suspect]
     Active Substance: HYDROXYCHLOROQUINE SULFATE
     Dosage: 20 MG, UNK
     Route: 048
  3. ENBREL [Suspect]
     Active Substance: ETANERCEPT
     Indication: RHEUMATOID ARTHRITIS
     Dosage: 50 MG, UNK
     Route: 058
  4. REMICADE [Suspect]
     Active Substance: INFLIXIMAB
     Dosage: 3 MG/KG, UNK
     Route: 042
  5. NEORAL [Suspect]
     Active Substance: CYCLOSPORINE
     Dosage: 20 MG, UNK
     Route: 048

REACTIONS (2)
  - Drug ineffective [Unknown]
  - C-reactive protein abnormal [Unknown]
